FAERS Safety Report 5850820-1 (Version None)
Quarter: 2008Q3

REPORT INFORMATION
  Report Type: 
  Country: None (occurrence: None)
  Receive Date: 20080818
  Receipt Date: 20080804
  Transmission Date: 20090109
  Serious: Yes (Other)
  Sender: FDA-Public Use
  Company Number: 2008AL009507

PATIENT
  Age: 62 Year
  Sex: Male

DRUGS (1)
  1. FLUOXETINE [Suspect]
     Dosage: PO
     Route: 048

REACTIONS (4)
  - CHAPPED LIPS [None]
  - ERYTHEMA [None]
  - LIP SWELLING [None]
  - SECRETION DISCHARGE [None]
